FAERS Safety Report 8543924-6 (Version None)
Quarter: 2012Q3

REPORT INFORMATION
  Report Type: 
  Country: None (occurrence: None)
  Receive Date: 20120717
  Receipt Date: 20120702
  Transmission Date: 20120928
  Serious: Yes (Hospitalization)
  Sender: FDA-Public Use
  Company Number: JPI-P-022481

PATIENT
  Age: 22 Year
  Sex: Female

DRUGS (1)
  1. XYREM [Suspect]
     Indication: CATAPLEXY
     Dosage: 4.5 GM (2.25 GM, 2 IN 1 D), ORAL
     Route: 048
     Dates: start: 20120302

REACTIONS (12)
  - DRUG INTOLERANCE [None]
  - GASTROINTESTINAL VIRAL INFECTION [None]
  - FEELING DRUNK [None]
  - CONDITION AGGRAVATED [None]
  - ANXIETY [None]
  - SOMNOLENCE [None]
  - VOMITING [None]
  - NAUSEA [None]
  - DIZZINESS [None]
  - MALAISE [None]
  - ABDOMINAL PAIN UPPER [None]
  - RETCHING [None]
